FAERS Safety Report 6533616-7 (Version None)
Quarter: 2010Q1

REPORT INFORMATION
  Report Type: 
  Country: None (occurrence: None)
  Receive Date: 20100108
  Receipt Date: 20100108
  Transmission Date: 20100710
  Serious: Yes (Hospitalization)
  Sender: FDA-Public Use
  Company Number: None

PATIENT
  Age: 65 Year
  Sex: Female
  Weight: 50 kg

DRUGS (1)
  1. GAMMAGARD [Suspect]
     Indication: GUILLAIN-BARRE SYNDROME
     Dosage: 2 GRAMMS DAILY IV
     Route: 042
     Dates: start: 20091129, end: 20091130

REACTIONS (3)
  - CEREBRAL INFARCTION [None]
  - ENCEPHALOPATHY [None]
  - TOBACCO USER [None]
